FAERS Safety Report 11332500 (Version 2)
Quarter: 2015Q3

REPORT INFORMATION
  Report Type: Spontaneous
  Country: US (occurrence: US)
  Receive Date: 20150803
  Receipt Date: 20150831
  Transmission Date: 20151125
  Serious: Yes (Life-Threatening, Hospitalization, Other)
  Sender: FDA-Public Use
  Company Number: US-ELI_LILLY_AND_COMPANY-US200810003897

PATIENT
  Sex: Female
  Weight: 162.36 kg

DRUGS (11)
  1. TEGRETAL [Concomitant]
     Active Substance: CARBAMAZEPINE
  2. CYMBALTA [Suspect]
     Active Substance: DULOXETINE HYDROCHLORIDE
     Indication: BIPOLAR DISORDER
     Dosage: 60 MG, UNK
  3. NEURONTIN [Concomitant]
     Active Substance: GABAPENTIN
  4. SEROQUEL [Concomitant]
     Active Substance: QUETIAPINE FUMARATE
  5. THYROID [Concomitant]
     Active Substance: LEVOTHYROXINE\LIOTHYRONINE
  6. ZYPREXA ZYDIS [Suspect]
     Active Substance: OLANZAPINE
     Indication: BIPOLAR DISORDER
  7. ZYPREXA [Suspect]
     Active Substance: OLANZAPINE
     Indication: BIPOLAR DISORDER
     Dosage: 450 MG, DAILY (1/D)
  8. THORAZINE [Concomitant]
     Active Substance: CHLORPROMAZINE
  9. ABILIFY [Concomitant]
     Active Substance: ARIPIPRAZOLE
  10. EFFEXOR [Concomitant]
     Active Substance: VENLAFAXINE HYDROCHLORIDE
  11. LITHIUM. [Concomitant]
     Active Substance: LITHIUM

REACTIONS (19)
  - Incoherent [Unknown]
  - Activities of daily living impaired [Unknown]
  - Social problem [Not Recovered/Not Resolved]
  - Accident [Unknown]
  - Sedation [Unknown]
  - Somnolence [Unknown]
  - Drooling [Unknown]
  - Prescribed overdose [Recovered/Resolved]
  - Hypoglycaemia [Unknown]
  - Weight increased [Unknown]
  - Cardiac arrest [Recovered/Resolved]
  - Social problem [Unknown]
  - Burning sensation [Recovered/Resolved]
  - Impaired driving ability [Unknown]
  - Hyperhidrosis [Recovered/Resolved]
  - Dyskinesia [Unknown]
  - Injury [Recovering/Resolving]
  - Vomiting [Recovered/Resolved]
  - Fatigue [Unknown]

NARRATIVE: CASE EVENT DATE: 2003
